FAERS Safety Report 4604814-4 (Version None)
Quarter: 2005Q2

REPORT INFORMATION
  Report Type: 
  Country: None (occurrence: None)
  Receive Date: 20050224
  Receipt Date: 20040520
  Transmission Date: 20051028
  Serious: No
  Sender: FDA-Public Use
  Company Number: 04P-163-0261636-00

PATIENT
  Age: 73 Year
  Sex: Female

DRUGS (1)
  1. MIVACRON [Suspect]
     Dosage: 2 MILLIGRAM/MILLILTERS, ONCE, INTRAVENOUS
     Route: 042
     Dates: start: 20040501, end: 20040501

REACTIONS (1)
  - DRUG EFFECT PROLONGED [None]
